FAERS Safety Report 5879493-9 (Version None)
Quarter: 2008Q3

REPORT INFORMATION
  Report Type: 
  Country: None (occurrence: None)
  Receive Date: 20080911
  Receipt Date: 20080911
  Transmission Date: 20090109
  Serious: Yes (Other)
  Sender: FDA-Public Use
  Company Number: None

PATIENT
  Age: 48 Year
  Sex: Female
  Weight: 58.9676 kg

DRUGS (2)
  1. CYMBALTA [Suspect]
     Indication: ANXIETY
     Dosage: 60MG  ONCE DAILY
     Dates: start: 20080501
  2. CYMBALTA [Suspect]
     Indication: DEPRESSION
     Dosage: 60MG  ONCE DAILY
     Dates: start: 20080501

REACTIONS (1)
  - ALOPECIA [None]
